FAERS Safety Report 9102540 (Version 1)
Quarter: 2013Q1

REPORT INFORMATION
  Report Type: Spontaneous
  Country: US (occurrence: US)
  Receive Date: 20130218
  Receipt Date: 20130218
  Transmission Date: 20140127
  Serious: No
  Sender: FDA-Public Use
  Company Number: US-BIOGENIDEC-2013BI013267

PATIENT
  Age: 52 Year
  Sex: Female

DRUGS (8)
  1. TYSABRI [Suspect]
     Indication: MULTIPLE SCLEROSIS
     Route: 042
     Dates: start: 20130122
  2. AVONEX [Concomitant]
     Indication: MULTIPLE SCLEROSIS
     Route: 030
     Dates: start: 20090701
  3. ANTIBIOTIC [Concomitant]
     Indication: SINUS DISORDER
     Route: 042
  4. ANTIBIOTIC [Concomitant]
     Indication: SINUS DISORDER
     Route: 048
  5. STEROID INJECTION (NOS) [Concomitant]
     Indication: SINUS DISORDER
  6. AZITHROMYCIN [Concomitant]
     Indication: BRONCHITIS
  7. AZITHROMYCIN [Concomitant]
     Indication: SINUS DISORDER
  8. ALKA SELTZER PLUS [Concomitant]
     Indication: PARANASAL SINUS HYPERSECRETION

REACTIONS (12)
  - Muscle spasms [Recovered/Resolved]
  - Balance disorder [Not Recovered/Not Resolved]
  - Dysuria [Not Recovered/Not Resolved]
  - Memory impairment [Not Recovered/Not Resolved]
  - Night blindness [Not Recovered/Not Resolved]
  - Migraine [Recovered/Resolved]
  - Coordination abnormal [Not Recovered/Not Resolved]
  - Optic neuritis [Not Recovered/Not Resolved]
  - Headache [Recovered/Resolved]
  - Pruritus generalised [Recovered/Resolved]
  - Vomiting [Recovered/Resolved]
  - Nausea [Recovered/Resolved]
